FAERS Safety Report 18303065 (Version 1)
Quarter: 2020Q3

REPORT INFORMATION
  Report Type: Other
  Country: US (occurrence: US)
  Receive Date: 20200923
  Receipt Date: 20200923
  Transmission Date: 20201103
  Serious: Yes (Other)
  Sender: FDA-Public Use
  Company Number: US-ROCHE-2678944

PATIENT
  Age: 41 Year
  Sex: Female
  Weight: 61.74 kg

DRUGS (2)
  1. OCREVUS [Suspect]
     Active Substance: OCRELIZUMAB
     Indication: RELAPSING MULTIPLE SCLEROSIS
     Dosage: INFUSE 300 MG DAY 1 AND DAY 15 THEN 600 MG ONCE IN 6 MONTHS
     Route: 042
     Dates: start: 20170913
  2. LISINOPRIL. [Concomitant]
     Active Substance: LISINOPRIL
     Indication: HYPERTENSION
     Route: 048
     Dates: start: 2013

REACTIONS (3)
  - Urinary tract infection [Not Recovered/Not Resolved]
  - Anger [Recovered/Resolved]
  - Emotional distress [Recovered/Resolved]

NARRATIVE: CASE EVENT DATE: 20200915
